FAERS Safety Report 16099745 (Version 1)
Quarter: 2019Q2

REPORT INFORMATION
  Report Type: Spontaneous
  Country: US (occurrence: US)
  Receive Date: 20190320
  Receipt Date: 20190320
  Transmission Date: 20190711
  Serious: Yes (Hospitalization)
  Sender: FDA-Public Use
  Company Number: None

PATIENT
  Age: 63 Year
  Sex: Female
  Weight: 97.5 kg

DRUGS (1)
  1. OZEMPIC [Suspect]
     Active Substance: SEMAGLUTIDE
     Indication: TYPE 2 DIABETES MELLITUS
     Dosage: ?          OTHER FREQUENCY:WEEKLY;?

REACTIONS (6)
  - Tubulointerstitial nephritis [None]
  - Nausea [None]
  - Urinary retention [None]
  - Acute kidney injury [None]
  - Dysphagia [None]
  - Vomiting [None]

NARRATIVE: CASE EVENT DATE: 20190318
